FAERS Safety Report 20501286 (Version 1)
Quarter: 2022Q1

REPORT INFORMATION
  Report Type: Spontaneous
  Country: US (occurrence: None)
  Receive Date: 20220221
  Receipt Date: 20220221
  Transmission Date: 20220423
  Serious: Yes (Other)
  Sender: FDA-Public Use
  Company Number: None

PATIENT
  Age: 80 Year
  Sex: Male

DRUGS (1)
  1. ZYTIGA [Suspect]
     Active Substance: ABIRATERONE ACETATE
     Indication: Prostate cancer
     Dosage: FREQUENCY : DAILY;?
     Route: 048
     Dates: start: 2019, end: 202201

REACTIONS (4)
  - Urine flow decreased [None]
  - Abdominal pain upper [None]
  - Feeding disorder [None]
  - Urethral obstruction [None]

NARRATIVE: CASE EVENT DATE: 20211101
